FAERS Safety Report 4539330-1 (Version None)
Quarter: 2004Q4

REPORT INFORMATION
  Report Type: 
  Country: None (occurrence: None)
  Receive Date: 20041223
  Receipt Date: 20020913
  Transmission Date: 20050328
  Serious: Yes (Other)
  Sender: FDA-Public Use
  Company Number: MEDI-0002489

PATIENT
  Age: 55 Year
  Sex: Male
  Weight: 111.5849 kg

DRUGS (14)
  1. ETHYOL [Suspect]
     Indication: RADIOTHERAPY
     Dosage: 500 MG , SUBCUTANEOUS
     Route: 058
     Dates: start: 20020710, end: 20020722
  2. RADIATION THERAPY [Concomitant]
  3. TAXOL [Concomitant]
  4. CARBOPLATIN [Concomitant]
  5. DILTIAZEM [Concomitant]
  6. DIOVAN [Concomitant]
  7. LIPITOR [Concomitant]
  8. ZANTAC [Concomitant]
  9. ACETYLSALICYLIC ACID SRT [Concomitant]
  10. COMPAZINE [Concomitant]
  11. ANZEMET (DOLASETRON MESILATE) [Concomitant]
  12. DECADRON [Concomitant]
  13. BENADRYL [Concomitant]
  14. PEPCID [Concomitant]

REACTIONS (8)
  - BILIARY TRACT DISORDER [None]
  - CHOLELITHIASIS [None]
  - HYPOTENSION [None]
  - INJECTION SITE REACTION [None]
  - LIVER FUNCTION TEST ABNORMAL [None]
  - MUCOSAL INFLAMMATION [None]
  - NAUSEA [None]
  - RADIATION SKIN INJURY [None]
